FAERS Safety Report 8298504-7 (Version None)
Quarter: 2012Q2

REPORT INFORMATION
  Report Type: 
  Country: None (occurrence: None)
  Receive Date: 20120419
  Receipt Date: 20111222
  Transmission Date: 20120825
  Serious: No
  Sender: FDA-Public Use
  Company Number: US-ABBOTT-11P-163-0886139-00

PATIENT
  Sex: Female
  Weight: 31.78 kg

DRUGS (3)
  1. LUPRON DEPOT-PED [Suspect]
     Indication: PRECOCIOUS PUBERTY
     Dates: start: 20111001
  2. LETROZOLE [Concomitant]
     Indication: HORMONE LEVEL ABNORMAL
  3. SOLU-CORTEF [Concomitant]
     Indication: HORMONE LEVEL ABNORMAL

REACTIONS (1)
  - ANIMAL BITE [None]
